FAERS Safety Report 8876367 (Version 2)
Quarter: 2012Q4

REPORT INFORMATION
  Report Type: 
  Country: NL (occurrence: NL)
  Receive Date: 20121030
  Receipt Date: 20121123
  Transmission Date: 20130627
  Serious: Yes (Death, Hospitalization)
  Sender: FDA-Public Use
  Company Number: NL-ACTELION-A-CH2012-70986

PATIENT
  Age: 78 Year
  Sex: Female

DRUGS (1)
  1. TRACLEER [Suspect]
     Indication: PULMONARY ARTERIAL HYPERTENSION
     Dosage: 62.5 mg, bid
     Route: 048
     Dates: start: 20120606, end: 20120829

REACTIONS (6)
  - Right ventricular failure [Fatal]
  - Pneumonia [Unknown]
  - Hypersensitivity [Recovered/Resolved]
  - Pruritus [Recovered/Resolved]
  - Fall [Unknown]
  - Hypothermia [Unknown]
